FAERS Safety Report 13659537 (Version 20)
Quarter: 2019Q4

REPORT INFORMATION
  Report Type: Report from Study
  Country: CA (occurrence: CA)
  Receive Date: 20170616
  Receipt Date: 20191203
  Transmission Date: 20200122
  Serious: Yes (Other)
  Sender: FDA-Public Use
  Company Number: PHHY2014CA049928

PATIENT
  Age: 63 Year
  Sex: Female

DRUGS (6)
  1. SANDOSTATIN LAR DEPOT [Suspect]
     Active Substance: OCTREOTIDE ACETATE
     Indication: ACROMEGALY
     Dosage: 20 MG, QMO (ONCE A MONTH)
     Route: 030
     Dates: start: 20060505
  2. NORPROLAC [Concomitant]
     Active Substance: QUINAGOLIDE HYDROCHLORIDE
     Indication: PRODUCT USED FOR UNKNOWN INDICATION
     Dosage: 75 MCG/ML, UNK
     Route: 065
  3. SANDOSTATIN LAR DEPOT [Suspect]
     Active Substance: OCTREOTIDE ACETATE
     Dosage: 20 MG, QMO (EVERY 4 WEEKS)
     Route: 030
     Dates: start: 20140730
  4. CABERGOLINE. [Concomitant]
     Active Substance: CABERGOLINE
     Indication: PRODUCT USED FOR UNKNOWN INDICATION
     Dosage: 0.5 MG, Q2W
     Route: 048
  5. BENYLIN [Concomitant]
     Active Substance: DIPHENHYDRAMINE HYDROCHLORIDE
     Indication: PRODUCT USED FOR UNKNOWN INDICATION
     Dosage: UNK
     Route: 065
  6. SANDOSTATIN LAR DEPOT [Suspect]
     Active Substance: OCTREOTIDE ACETATE
     Dosage: 30 MG, QMO (EVERY 4 WEEKS)
     Route: 030
     Dates: start: 20100720

REACTIONS (40)
  - Influenza [Unknown]
  - Body temperature decreased [Unknown]
  - Headache [Unknown]
  - Nervousness [Unknown]
  - Nasopharyngitis [Not Recovered/Not Resolved]
  - Decreased immune responsiveness [Unknown]
  - Blood glucose abnormal [Unknown]
  - Blood glucose increased [Unknown]
  - Dyspnoea [Unknown]
  - Asthenia [Unknown]
  - Injection site pain [Unknown]
  - Pancreatic duct dilatation [Unknown]
  - Biliary dilatation [Unknown]
  - Fatigue [Unknown]
  - Chest pain [Unknown]
  - Hypoaesthesia [Unknown]
  - Chronic leukaemia [Unknown]
  - Blood glucose decreased [Unknown]
  - Gastrointestinal motility disorder [Unknown]
  - Defaecation urgency [Unknown]
  - Pallor [Unknown]
  - Back pain [Unknown]
  - Pain [Unknown]
  - Type 2 diabetes mellitus [Unknown]
  - Blood pressure increased [Unknown]
  - Insomnia [Unknown]
  - Nasal congestion [Not Recovered/Not Resolved]
  - Cough [Not Recovered/Not Resolved]
  - Corneal abrasion [Unknown]
  - Nausea [Unknown]
  - Bowel movement irregularity [Unknown]
  - Diarrhoea [Unknown]
  - Neuroendocrine tumour [Unknown]
  - Hyperhidrosis [Unknown]
  - Productive cough [Unknown]
  - Dizziness [Unknown]
  - Malaise [Unknown]
  - Bradycardia [Unknown]
  - Ill-defined disorder [Unknown]
  - Alopecia [Unknown]

NARRATIVE: CASE EVENT DATE: 2016
